FAERS Safety Report 4964182-5 (Version None)
Quarter: 2006Q2

REPORT INFORMATION
  Report Type: 
  Country: None (occurrence: None)
  Receive Date: 20060404
  Receipt Date: 20060404
  Transmission Date: 20061013
  Serious: Yes (Hospitalization)
  Sender: FDA-Public Use
  Company Number: None

PATIENT
  Sex: Male
  Weight: 65 kg

DRUGS (2)
  1. VELCADE [Suspect]
     Indication: LIP AND/OR ORAL CAVITY CANCER
     Dosage: 1.23 MG DAYS 1, 4, 8, 11 Q3 WK IV
     Route: 042
     Dates: start: 20060213, end: 20060310
  2. CISPLATIN [Suspect]
     Indication: LIP AND/OR ORAL CAVITY CANCER
     Dosage: 53.1 MG WEEKLY IV
     Route: 042
     Dates: start: 20060213, end: 20060307

REACTIONS (7)
  - DEHYDRATION [None]
  - MALAISE [None]
  - MUCOSAL INFLAMMATION [None]
  - NAUSEA [None]
  - SEPSIS [None]
  - VOMITING [None]
  - WHITE BLOOD CELL COUNT DECREASED [None]
